FAERS Safety Report 5787788-2 (Version None)
Quarter: 2008Q2

REPORT INFORMATION
  Report Type: 
  Country: None (occurrence: None)
  Receive Date: 20080625
  Receipt Date: 20080611
  Transmission Date: 20081010
  Serious: Yes (Other)
  Sender: FDA-Public Use
  Company Number: PHHY2008JP02307

PATIENT
  Sex: Male
  Weight: 22 kg

DRUGS (10)
  1. NEORAL [Suspect]
     Indication: STEM CELL TRANSPLANT
     Dosage: UNK
     Route: 048
     Dates: start: 20070801, end: 20071224
  2. NEORAL [Suspect]
     Indication: PROPHYLAXIS AGAINST GRAFT VERSUS HOST DISEASE
     Dosage: 150 MG/DAY
     Route: 048
     Dates: start: 20080107, end: 20080128
  3. STEROIDS NOS [Suspect]
     Dosage: PULSE
  4. PREDONINE [Concomitant]
     Indication: GRAFT VERSUS HOST DISEASE
     Dosage: 24 MG
     Route: 042
     Dates: start: 20080125, end: 20080207
  5. BAKTAR [Concomitant]
     Indication: INFECTION PROPHYLAXIS
     Dosage: 2.5 MG
     Route: 048
     Dates: start: 20080118
  6. FAMOTIDINE [Concomitant]
     Indication: PROPHYLAXIS AGAINST GASTROINTESTINAL ULCER
     Dosage: 20 MG
     Route: 042
     Dates: start: 20080114
  7. MINOPHAGEN C [Concomitant]
     Indication: HEPATIC FUNCTION ABNORMAL
     Dosage: UNK
     Route: 042
     Dates: start: 20080107, end: 20080218
  8. FUNGUARD [Concomitant]
     Indication: FUNGAL INFECTION
     Dosage: 50 MG
     Dates: start: 20080114, end: 20080131
  9. VITAMEDIN [Concomitant]
     Indication: HEPATIC FUNCTION ABNORMAL
     Dosage: 1 DF
     Route: 042
     Dates: start: 20071231, end: 20080218
  10. CLARITHROMYCIN [Concomitant]
     Indication: PNEUMONIA
     Dosage: 300MG
     Route: 048
     Dates: start: 20080121, end: 20080131

REACTIONS (19)
  - ALANINE AMINOTRANSFERASE INCREASED [None]
  - ASPARTATE AMINOTRANSFERASE INCREASED [None]
  - BLOOD LACTATE DEHYDROGENASE INCREASED [None]
  - BLOOD PRESSURE INCREASED [None]
  - CONVULSION [None]
  - COUGH [None]
  - FACIAL SPASM [None]
  - FUNGAL INFECTION [None]
  - GRAFT VERSUS HOST DISEASE [None]
  - HEADACHE [None]
  - HYPERTENSIVE ENCEPHALOPATHY [None]
  - LIVER DISORDER [None]
  - NUCLEAR MAGNETIC RESONANCE IMAGING BRAIN ABNORMAL [None]
  - OBLITERATIVE BRONCHIOLITIS [None]
  - OXYGEN SATURATION DECREASED [None]
  - PNEUMONIA [None]
  - UNRESPONSIVE TO STIMULI [None]
  - VOMITING [None]
  - WHITE BLOOD CELL COUNT INCREASED [None]
